FAERS Safety Report 9796588 (Version 1)
Quarter: 2014Q1

REPORT INFORMATION
  Report Type: Spontaneous
  Country: US (occurrence: US)
  Receive Date: 20140103
  Receipt Date: 20140103
  Transmission Date: 20141002
  Serious: Yes (Other)
  Sender: FDA-Public Use
  Company Number: US-PURDUE-USA-2013-0109953

PATIENT
  Age: 25 Year
  Sex: Male

DRUGS (1)
  1. OXYCODONE HCL CR TABLETS (SIMILAR TO NDA 22-272) [Suspect]
     Indication: PRODUCT USED FOR UNKNOWN INDICATION
     Dosage: UNKNOWN

REACTIONS (3)
  - Drug abuse [Unknown]
  - Road traffic accident [Unknown]
  - Somnolence [Unknown]
